FAERS Safety Report 7783490-6 (Version None)
Quarter: 2011Q3

REPORT INFORMATION
  Report Type: 
  Country: None (occurrence: None)
  Receive Date: 20110928
  Receipt Date: 20101004
  Transmission Date: 20111222
  Serious: No
  Sender: FDA-Public Use
  Company Number: US-MYLANLABS-2010S1018346

PATIENT
  Sex: Male

DRUGS (1)
  1. RANITIDINE HCL [Suspect]
     Indication: OESOPHAGEAL DISORDER

REACTIONS (2)
  - OESOPHAGEAL IRRITATION [None]
  - DRUG INEFFECTIVE [None]
